FAERS Safety Report 25645093 (Version 1)
Quarter: 2025Q3

REPORT INFORMATION
  Report Type: Spontaneous
  Country: US (occurrence: US)
  Receive Date: 20250805
  Receipt Date: 20250805
  Transmission Date: 20251020
  Serious: No
  Sender: VERTEX
  Company Number: US-VERTEX PHARMACEUTICALS-2025-012600

PATIENT
  Age: 72 Year
  Sex: Female

DRUGS (3)
  1. JOURNAVX [Suspect]
     Active Substance: SUZETRIGINE
     Indication: Pain
     Dosage: 100 MG (02 TABLETS OF 50MG), SINGLE
     Route: 048
     Dates: start: 20250628, end: 20250628
  2. JOURNAVX [Suspect]
     Active Substance: SUZETRIGINE
     Indication: Pain in extremity
     Dosage: 50 MG, BID
     Route: 048
     Dates: start: 20250629, end: 20250712
  3. JOURNAVX [Suspect]
     Active Substance: SUZETRIGINE
     Indication: Nerve compression

REACTIONS (2)
  - Nausea [Recovered/Resolved]
  - Off label use [Unknown]

NARRATIVE: CASE EVENT DATE: 20250628
